FAERS Safety Report 16885547 (Version 3)
Quarter: 2019Q4

REPORT INFORMATION
  Report Type: Spontaneous
  Country: FR (occurrence: FR)
  Receive Date: 20191004
  Receipt Date: 20191216
  Transmission Date: 20200122
  Serious: Yes (Other)
  Sender: FDA-Public Use
  Company Number: FR-ABBVIE-19K-056-2946783-00

PATIENT
  Age: 51 Year
  Sex: Female
  Weight: 55 kg

DRUGS (4)
  1. HUMIRA [Suspect]
     Active Substance: ADALIMUMAB
     Indication: SHORT-BOWEL SYNDROME
     Route: 058
     Dates: start: 2015, end: 201910
  2. METHOTREXATE. [Concomitant]
     Active Substance: METHOTREXATE
     Indication: POLYARTHRITIS
     Route: 030
     Dates: start: 201612
  3. METHOTREXATE. [Concomitant]
     Active Substance: METHOTREXATE
  4. HUMIRA [Suspect]
     Active Substance: ADALIMUMAB
     Indication: CROHN^S DISEASE

REACTIONS (11)
  - Joint swelling [Unknown]
  - Pain [Unknown]
  - Poor quality sleep [Unknown]
  - Fatigue [Unknown]
  - Spondylitis [Not Recovered/Not Resolved]
  - Headache [Unknown]
  - Myositis [Unknown]
  - Asthenia [Unknown]
  - Hidradenitis [Unknown]
  - Tooth fracture [Recovered/Resolved]
  - Alopecia [Unknown]

NARRATIVE: CASE EVENT DATE: 2015
